APPROVED DRUG PRODUCT: CYANOCOBALAMIN
Active Ingredient: CYANOCOBALAMIN
Strength: 1MG/ML
Dosage Form/Route: INJECTABLE;INJECTION
Application: A215046 | Product #001
Applicant: XIROMED PHARMA ESPANA SL
Approved: Aug 20, 2021 | RLD: No | RS: No | Type: DISCN